FAERS Safety Report 6293295-3 (Version None)
Quarter: 2009Q3

REPORT INFORMATION
  Report Type: 
  Country: None (occurrence: None)
  Receive Date: 20090731
  Receipt Date: 20090728
  Transmission Date: 20100115
  Serious: Yes (Death, Hospitalization)
  Sender: FDA-Public Use
  Company Number: US-AMGEN-US357780

PATIENT

DRUGS (12)
  1. ENBREL [Suspect]
     Route: 064
     Dates: start: 20080929, end: 20081023
  2. VITAMIN TAB [Concomitant]
     Route: 064
     Dates: start: 20080929, end: 20090131
  3. VITAMIN TAB [Concomitant]
     Route: 064
     Dates: start: 20090201
  4. FOLIC ACID [Concomitant]
     Route: 064
     Dates: start: 20080929, end: 20081101
  5. PREDNISONE TAB [Concomitant]
     Route: 064
     Dates: start: 20081018, end: 20081024
  6. PREDNISONE TAB [Concomitant]
     Route: 064
     Dates: start: 20081010, end: 20081017
  7. PREDNISONE TAB [Concomitant]
     Route: 064
     Dates: start: 20080929, end: 20081009
  8. FAMCICLOVIR [Concomitant]
     Route: 064
     Dates: start: 20081025, end: 20081026
  9. KENALOG [Concomitant]
     Route: 064
     Dates: start: 20081211, end: 20081211
  10. KENALOG [Concomitant]
     Route: 064
     Dates: start: 20090417, end: 20090417
  11. INFLUENZA VACCINE [Concomitant]
     Route: 064
     Dates: start: 20081107, end: 20081107
  12. IRON [Concomitant]
     Route: 064
     Dates: start: 20090430

REACTIONS (1)
  - NEONATAL ASPHYXIA [None]
